FAERS Safety Report 18824406 (Version 2)
Quarter: 2021Q1

REPORT INFORMATION
  Report Type: Spontaneous
  Country: US (occurrence: US)
  Receive Date: 20210202
  Receipt Date: 20210323
  Transmission Date: 20210419
  Serious: No
  Sender: FDA-Public Use
  Company Number: US-VIFOR (INTERNATIONAL) INC.-VIT-2021-00357

PATIENT
  Age: 67 Year
  Sex: Male
  Weight: 128.48 kg

DRUGS (13)
  1. CARVEDILOL. [Concomitant]
     Active Substance: CARVEDILOL
     Route: 048
  2. CLOTRIMAZOLE AND BETAMETHASONE DIPROPIONATE [Concomitant]
     Active Substance: BETAMETHASONE\BETAMETHASONE DIPROPIONATE\CLOTRIMAZOLE
     Dosage: 1?0.05 %
     Route: 061
  3. ASPIRIN 81 [Concomitant]
     Active Substance: ASPIRIN
     Route: 048
  4. ATORVASTATIN [Concomitant]
     Active Substance: ATORVASTATIN
     Route: 048
  5. METFORMIN [Concomitant]
     Active Substance: METFORMIN HYDROCHLORIDE
     Route: 048
  6. METAMUCIL FREE AND NATURAL [Concomitant]
     Route: 048
  7. TAMSULOSIN [Concomitant]
     Active Substance: TAMSULOSIN
     Route: 048
  8. VELTASSA [Suspect]
     Active Substance: PATIROMER
     Indication: HYPERKALAEMIA
     Route: 048
     Dates: start: 20201211
  9. AZELASTINE HCL [Concomitant]
     Active Substance: AZELASTINE HYDROCHLORIDE
     Dosage: 137 MCG/SPRAY, 2 SPRAYS IN EACH NOSTRIL BID
  10. MULTIVITAMIN ADULT [Concomitant]
     Route: 048
  11. BUMETANIDE. [Concomitant]
     Active Substance: BUMETANIDE
     Route: 048
  12. FERROUS SULFATE. [Concomitant]
     Active Substance: FERROUS SULFATE
     Route: 048
  13. LISINOPRIL. [Concomitant]
     Active Substance: LISINOPRIL

REACTIONS (3)
  - Product dose omission issue [Not Recovered/Not Resolved]
  - Product solubility abnormal [Not Recovered/Not Resolved]
  - Unevaluable event [Unknown]
